FAERS Safety Report 8431649-7 (Version None)
Quarter: 2012Q2

REPORT INFORMATION
  Report Type: 
  Country: None (occurrence: None)
  Receive Date: 20120613
  Receipt Date: 20120206
  Transmission Date: 20120825
  Serious: No
  Sender: FDA-Public Use
  Company Number: US-GLAXOSMITHKLINE-A0964790A

PATIENT
  Age: 47 Year
  Sex: Female
  Weight: 79.5 kg

DRUGS (2)
  1. NO CONCURRENT MEDICATION [Concomitant]
  2. TREXIMET [Suspect]
     Indication: MIGRAINE
     Dosage: 1TAB AS REQUIRED
     Route: 048
     Dates: start: 20111225, end: 20111225

REACTIONS (2)
  - EYELID OEDEMA [None]
  - SKIN DISCOLOURATION [None]
